FAERS Safety Report 9520112 (Version 1)
Quarter: 2013Q3

REPORT INFORMATION
  Report Type: Spontaneous
  Country: MX (occurrence: MX)
  Receive Date: 20130912
  Receipt Date: 20130912
  Transmission Date: 20140515
  Serious: Yes (Other)
  Sender: FDA-Public Use
  Company Number: PHHY2013MX100806

PATIENT
  Age: 84 Year
  Sex: Female

DRUGS (4)
  1. CO-DIOVAN [Suspect]
     Indication: HYPERTENSION
     Dosage: 1 COATED TABLET (160/12.5 MG), DAILY
     Route: 048
     Dates: start: 200809, end: 201309
  2. CO-DIOVAN [Suspect]
     Dosage: 80/12.5 MG, UNK
  3. AKATINOL MEMANTINE [Concomitant]
     Dosage: 1 DF, DAILY
     Dates: start: 201303
  4. EBIXA [Concomitant]
     Dosage: 1 DF, DAILY
     Dates: start: 201303

REACTIONS (6)
  - Aortic aneurysm [Recovered/Resolved]
  - Cerebrovascular accident [Recovered/Resolved]
  - Cognitive disorder [Recovered/Resolved]
  - Stress [Recovered/Resolved]
  - Anxiety [Recovered/Resolved]
  - Blood pressure decreased [Recovered/Resolved]
